FAERS Safety Report 7700176-4 (Version None)
Quarter: 2011Q3

REPORT INFORMATION
  Report Type: 
  Country: None (occurrence: None)
  Receive Date: 20110822
  Receipt Date: 20110819
  Transmission Date: 20111222
  Serious: No
  Sender: FDA-Public Use
  Company Number: US-PFIZER INC-2011192432

PATIENT
  Sex: Female

DRUGS (3)
  1. ATENOLOL [Concomitant]
     Indication: HEART RATE IRREGULAR
     Dosage: UNK
  2. PRISTIQ [Suspect]
     Indication: STRESS
     Dosage: 50 MG, 1X/DAY
     Route: 048
     Dates: start: 20110623, end: 20110801
  3. PRISTIQ [Suspect]
     Indication: DEPRESSION

REACTIONS (1)
  - NAUSEA [None]
